FAERS Safety Report 6937625-5 (Version None)
Quarter: 2010Q3

REPORT INFORMATION
  Report Type: 
  Country: None (occurrence: None)
  Receive Date: 20100820
  Receipt Date: 20100820
  Transmission Date: 20110219
  Serious: No
  Sender: FDA-Public Use
  Company Number: None

PATIENT
  Sex: Male
  Weight: 106.5953 kg

DRUGS (1)
  1. ZOLPIDEM [Suspect]
     Indication: SLEEP DISORDER THERAPY
     Dosage: 10 MG 1 DAILY
     Dates: start: 20100725, end: 20100811

REACTIONS (3)
  - DRUG EFFECT DECREASED [None]
  - DRUG EFFECT DELAYED [None]
  - PRODUCT SUBSTITUTION ISSUE [None]
